FAERS Safety Report 10577865 (Version 3)
Quarter: 2015Q1

REPORT INFORMATION
  Report Type: Report from Study
  Country: US (occurrence: US)
  Receive Date: 20141112
  Receipt Date: 20150213
  Transmission Date: 20150720
  Serious: No
  Sender: FDA-Public Use
  Company Number: US-AMGEN-USASL2014086705

PATIENT
  Age: 60 Year
  Sex: Female

DRUGS (1)
  1. ENBREL [Suspect]
     Active Substance: ETANERCEPT
     Indication: RHEUMATOID ARTHRITIS
     Dosage: 50 MG, Q2WK
     Route: 058
     Dates: start: 20140818

REACTIONS (5)
  - Skin ulcer [Recovered/Resolved]
  - Fungal skin infection [Recovered/Resolved]
  - Rash [Unknown]
  - Blister [Recovered/Resolved]
  - Rash erythematous [Recovered/Resolved]
